FAERS Safety Report 10147445 (Version 1)
Quarter: 2014Q2

REPORT INFORMATION
  Report Type: Report from Study
  Country: NL (occurrence: NL)
  Receive Date: 20140501
  Receipt Date: 20140501
  Transmission Date: 20141212
  Serious: Yes (Other)
  Sender: FDA-Public Use
  Company Number: NL-BAXTER-2014BAX021187

PATIENT
  Sex: 0

DRUGS (1)
  1. NATRIUMCHLORIDE 0,9% [Suspect]
     Indication: ACUTE RESPIRATORY DISTRESS SYNDROME
     Dosage: STARTING WITHING 6 HOURS AFTER RANDOMIZATION INTO THE STUDY
     Route: 042

REACTIONS (1)
  - Pneumothorax [Unknown]
